FAERS Safety Report 8960685 (Version 1)
Quarter: 2012Q4

REPORT INFORMATION
  Report Type: 
  Country: US (occurrence: US)
  Receive Date: 20121212
  Receipt Date: 20121212
  Transmission Date: 20130627
  Serious: No
  Sender: FDA-Public Use
  Company Number: US-PFIZER INC-2012308045

PATIENT
  Sex: Male

DRUGS (1)
  1. DEPO-TESTOSTERONE [Suspect]
     Dosage: UNK, every 2 weeks

REACTIONS (3)
  - Injection site swelling [Unknown]
  - Pain [Unknown]
  - Erythema [Unknown]
